FAERS Safety Report 4941326-2 (Version None)
Quarter: 2006Q1

REPORT INFORMATION
  Report Type: 
  Country: None (occurrence: None)
  Receive Date: 20060313
  Receipt Date: 20060202
  Transmission Date: 20060701
  Serious: Yes (Hospitalization, Other)
  Sender: FDA-Public Use
  Company Number: US-MERCK-0602USA01751

PATIENT
  Age: 61 Year
  Sex: Male
  Weight: 114 kg

DRUGS (1)
  1. VIOXX [Suspect]
     Route: 048

REACTIONS (6)
  - HYPERCHOLESTEROLAEMIA [None]
  - MYOCARDIAL INFARCTION [None]
  - NEUROPATHY PERIPHERAL [None]
  - PLANTAR FASCIITIS [None]
  - PSEUDARTHROSIS [None]
  - SPINAL DISORDER [None]
